FAERS Safety Report 6033405-6 (Version None)
Quarter: 2009Q1

REPORT INFORMATION
  Report Type: 
  Country: None (occurrence: None)
  Receive Date: 20090109
  Receipt Date: 20090106
  Transmission Date: 20090719
  Serious: Yes (Other)
  Sender: FDA-Public Use
  Company Number: US-WYE-H06537508

PATIENT
  Sex: Female
  Weight: 66.28 kg

DRUGS (4)
  1. PRISTIQ [Suspect]
     Indication: MAJOR DEPRESSION
     Route: 048
     Dates: start: 20081008, end: 20081020
  2. CYMBALTA [Concomitant]
     Indication: MAJOR DEPRESSION
     Route: 048
     Dates: start: 20080201, end: 20080701
  3. CYMBALTA [Concomitant]
     Dates: start: 20080701, end: 20081005
  4. CYMBALTA [Concomitant]
     Route: 048
     Dates: start: 20081006

REACTIONS (3)
  - MALAISE [None]
  - SUICIDAL IDEATION [None]
  - THINKING ABNORMAL [None]
